FAERS Safety Report 17269577 (Version 1)
Quarter: 2020Q1

REPORT INFORMATION
  Report Type: Report from Study
  Country: CA (occurrence: CA)
  Receive Date: 20200114
  Receipt Date: 20200114
  Transmission Date: 20200409
  Serious: Yes (Other)
  Sender: FDA-Public Use
  Company Number: CA-PFIZER INC-2020009134

PATIENT
  Age: 59 Year
  Sex: Male

DRUGS (4)
  1. COSENTYX [Suspect]
     Active Substance: SECUKINUMAB
     Indication: PSORIASIS
     Dosage: 300 MG, WEEKLY
     Route: 058
  2. BETAMETHASONE DIPROPIONATE/CALCIPOTRIOL [Concomitant]
     Route: 065
  3. STELARA [Concomitant]
     Active Substance: USTEKINUMAB
     Dosage: UNK
     Route: 065
  4. METHOTREXATE SODIUM. [Suspect]
     Active Substance: METHOTREXATE SODIUM
     Dosage: UNK
     Route: 065

REACTIONS (2)
  - Heart rate increased [Unknown]
  - Blood pressure increased [Unknown]
